FAERS Safety Report 18372000 (Version 1)
Quarter: 2020Q4

REPORT INFORMATION
  Report Type: Spontaneous
  Country: US (occurrence: US)
  Receive Date: 20201012
  Receipt Date: 20201012
  Transmission Date: 20210114
  Serious: Yes (Other)
  Sender: FDA-Public Use
  Company Number: US-TEVA-2020-US-1836837

PATIENT
  Age: 60 Year
  Sex: Female

DRUGS (14)
  1. NOVOLOG [Concomitant]
     Active Substance: INSULIN ASPART
  2. OMEPRAZOLE. [Concomitant]
     Active Substance: OMEPRAZOLE
  3. OZEMPIC [Concomitant]
     Active Substance: SEMAGLUTIDE
  4. VIT D [Concomitant]
     Active Substance: VITAMIN D NOS
  5. ALBUTEROL. [Concomitant]
     Active Substance: ALBUTEROL
  6. ONDANSETRON [Concomitant]
     Active Substance: ONDANSETRON
  7. GABAPENTIN. [Concomitant]
     Active Substance: GABAPENTIN
  8. LEVEMIR [Concomitant]
     Active Substance: INSULIN DETEMIR
  9. MODAFINIL. [Concomitant]
     Active Substance: MODAFINIL
  10. SIMVASTATIN. [Concomitant]
     Active Substance: SIMVASTATIN
  11. COPAXONE [Suspect]
     Active Substance: GLATIRAMER ACETATE
     Indication: MULTIPLE SCLEROSIS
     Route: 058
     Dates: start: 20200414
  12. LISINOPRIL. [Concomitant]
     Active Substance: LISINOPRIL
  13. MELOXICAM. [Concomitant]
     Active Substance: MELOXICAM
  14. NORTRIPTYLIN [Concomitant]
     Active Substance: NORTRIPTYLINE

REACTIONS (1)
  - Neoplasm malignant [Not Recovered/Not Resolved]
